FAERS Safety Report 4300594-0 (Version None)
Quarter: 2004Q1

REPORT INFORMATION
  Report Type: 
  Country: None (occurrence: None)
  Receive Date: 20040220
  Receipt Date: 20040211
  Transmission Date: 20041129
  Serious: Yes (Hospitalization)
  Sender: FDA-Public Use
  Company Number: FR-ROCHE-358529

PATIENT
  Age: 77 Year
  Sex: Male

DRUGS (6)
  1. ROCEPHIN [Suspect]
     Route: 042
     Dates: start: 20040101, end: 20040105
  2. FLAGYL [Suspect]
     Route: 048
     Dates: start: 20040101, end: 20040105
  3. DILTIAZEM HCL [Concomitant]
     Indication: ANGINA PECTORIS
     Route: 048
  4. PREVISCAN [Concomitant]
     Indication: PROPHYLAXIS
     Route: 048
  5. TAHOR [Concomitant]
     Route: 048
  6. RISORDAN [Concomitant]
     Indication: CARDIAC DISORDER
     Route: 048

REACTIONS (2)
  - DERMATITIS EXFOLIATIVE [None]
  - DISEASE PROGRESSION [None]
